FAERS Safety Report 7658729-8 (Version None)
Quarter: 2011Q3

REPORT INFORMATION
  Report Type: 
  Country: None (occurrence: None)
  Receive Date: 20110805
  Receipt Date: 20110801
  Transmission Date: 20111222
  Serious: Yes (Other)
  Sender: FDA-Public Use
  Company Number: JP-SANOFI-AVENTIS-2011SA049329

PATIENT
  Age: 63 Year
  Sex: Male
  Weight: 59 kg

DRUGS (5)
  1. BASEN [Concomitant]
     Indication: DIABETES MELLITUS
     Route: 048
     Dates: end: 20090223
  2. AMARYL [Suspect]
     Route: 048
     Dates: start: 20110629, end: 20110801
  3. BASEN [Concomitant]
     Route: 048
     Dates: start: 20090224
  4. KINEDAK [Concomitant]
     Route: 048
     Dates: start: 20030313
  5. AMARYL [Suspect]
     Indication: DIABETES MELLITUS
     Route: 048
     Dates: start: 20030310, end: 20110516

REACTIONS (1)
  - HYPOAESTHESIA [None]
